FAERS Safety Report 8862196 (Version 2)
Quarter: 2012Q4

REPORT INFORMATION
  Report Type: 
  Country: US (occurrence: US)
  Receive Date: 20121026
  Receipt Date: 20121109
  Transmission Date: 20130627
  Serious: Yes (Other)
  Sender: FDA-Public Use
  Company Number: 2012SP002946

PATIENT
  Age: 35 Year
  Sex: Female
  Weight: 74 kg

DRUGS (2)
  1. LATUDA [Suspect]
     Indication: PSYCHOTIC DISORDER
     Route: 048
     Dates: start: 20120921, end: 20121002
  2. INSULINS AND ANALOGUES [Concomitant]
     Indication: TYPE 1 DIABETES MELLITUS

REACTIONS (1)
  - Blood glucose increased [Recovering/Resolving]
